FAERS Safety Report 11427111 (Version 2)
Quarter: 2015Q3

REPORT INFORMATION
  Report Type: Spontaneous
  Country: CA (occurrence: CA)
  Receive Date: 20150827
  Receipt Date: 20150902
  Transmission Date: 20151125
  Serious: Yes (Other)
  Sender: FDA-Public Use
  Company Number: CA-GILEAD-2015-0168742

PATIENT
  Age: 68 Year
  Sex: Female

DRUGS (1)
  1. VIREAD [Suspect]
     Active Substance: TENOFOVIR DISOPROXIL FUMARATE
     Indication: HEPATITIS B
     Dosage: 300 MG, QD
     Route: 048
     Dates: start: 200606

REACTIONS (6)
  - Suspected counterfeit product [Unknown]
  - Drug ineffective [Unknown]
  - Hepatitis [Not Recovered/Not Resolved]
  - Pathogen resistance [Unknown]
  - Treatment noncompliance [Unknown]
  - Viral load increased [Unknown]

NARRATIVE: CASE EVENT DATE: 20150718
